FAERS Safety Report 8681050 (Version 2)
Quarter: 2012Q4

REPORT INFORMATION
  Report Type: 
  Country: GB (occurrence: GB)
  Receive Date: 20120724
  Receipt Date: 20121221
  Transmission Date: 20130627
  Serious: Yes (Other)
  Sender: FDA-Public Use
  Company Number: GB-PFIZER INC-2012174700

PATIENT
  Age: 71 Year
  Sex: Male

DRUGS (5)
  1. EPLERENONE [Suspect]
     Indication: BODY FLUID RETENTION
     Dosage: 25 mg, UNK
  2. WARFARIN [Concomitant]
  3. LANSOPRAZOL [Concomitant]
  4. DIGOXIN [Concomitant]
  5. RAMIPRIL [Concomitant]

REACTIONS (2)
  - Arterial thrombosis [Recovering/Resolving]
  - Cerebrovascular accident [Unknown]
